FAERS Safety Report 19683264 (Version 1)
Quarter: 2021Q3

REPORT INFORMATION
  Report Type: Spontaneous
  Country: US (occurrence: US)
  Receive Date: 20210811
  Receipt Date: 20210811
  Transmission Date: 20211014
  Serious: Yes (Other)
  Sender: FDA-Public Use
  Company Number: US-CHIESI-2021CHF00872

PATIENT
  Sex: Female

DRUGS (3)
  1. KENGREAL [Suspect]
     Active Substance: CANGRELOR
     Indication: PERCUTANEOUS CORONARY INTERVENTION
     Dosage: 30 MICROGRAM/KILOGRAM
     Route: 040
  2. KENGREAL [Suspect]
     Active Substance: CANGRELOR
     Dosage: 4 UNK
     Route: 042
  3. BIVALIRUDIN. [Concomitant]
     Active Substance: BIVALIRUDIN
     Indication: PRODUCT USED FOR UNKNOWN INDICATION
     Dosage: UNK

REACTIONS (1)
  - Haemorrhage [Unknown]

NARRATIVE: CASE EVENT DATE: 202010
